FAERS Safety Report 5710011-1 (Version None)
Quarter: 2008Q2

REPORT INFORMATION
  Report Type: 
  Country: None (occurrence: None)
  Receive Date: 20080418
  Receipt Date: 20080408
  Transmission Date: 20081010
  Serious: Yes (Other)
  Sender: FDA-Public Use
  Company Number: BR-ABBOTT-07P-020-0370179-00

PATIENT
  Sex: Female

DRUGS (3)
  1. DEPAKOTE [Suspect]
     Indication: BORDERLINE PERSONALITY DISORDER
     Route: 048
     Dates: start: 20070301
  2. CLONAZEPAM [Concomitant]
     Indication: BORDERLINE PERSONALITY DISORDER
     Route: 048
  3. CLONAZEPAM [Concomitant]
     Indication: PANIC REACTION

REACTIONS (1)
  - ABORTION INDUCED [None]
